FAERS Safety Report 15317397 (Version 1)
Quarter: 2018Q3

REPORT INFORMATION
  Report Type: Spontaneous
  Country: US (occurrence: US)
  Receive Date: 20180824
  Receipt Date: 20180824
  Transmission Date: 20181010
  Serious: No
  Sender: FDA-Public Use
  Company Number: US-BAYER-2018-159366

PATIENT
  Age: 83 Year
  Sex: Male

DRUGS (1)
  1. ULTRAVIST [Suspect]
     Active Substance: IOPROMIDE
     Indication: RENAL MASS
     Dosage: UNK UNK, ONCE
     Dates: start: 20180410, end: 20180410

REACTIONS (1)
  - Urticaria [None]

NARRATIVE: CASE EVENT DATE: 20180410
